FAERS Safety Report 21380943 (Version 3)
Quarter: 2023Q1

REPORT INFORMATION
  Report Type: Report from Study
  Country: US (occurrence: US)
  Receive Date: 20220927
  Receipt Date: 20230302
  Transmission Date: 20230418
  Serious: Yes (Hospitalization, Other)
  Sender: FDA-Public Use
  Company Number: US-UCBSA-2022056737

PATIENT
  Age: 20 Year
  Sex: Female

DRUGS (3)
  1. FINTEPLA [Suspect]
     Active Substance: FENFLURAMINE
     Indication: Product used for unknown indication
     Dosage: 4 MILLILITER, 2X/DAY (BID)
  2. FINTEPLA [Suspect]
     Active Substance: FENFLURAMINE
     Dosage: 5.9 MILLILITER, 2X/DAY (BID)
  3. FINTEPLA [Suspect]
     Active Substance: FENFLURAMINE
     Dosage: 5.9 MILLILITER, 2X/DAY (BID)

REACTIONS (7)
  - Seizure [Recovering/Resolving]
  - Blood sodium decreased [Recovering/Resolving]
  - Hypotension [Not Recovered/Not Resolved]
  - Generalised tonic-clonic seizure [Not Recovered/Not Resolved]
  - Seizure cluster [Not Recovered/Not Resolved]
  - Foot fracture [Not Recovered/Not Resolved]
  - Cast application [Not Recovered/Not Resolved]

NARRATIVE: CASE EVENT DATE: 20220920
